FAERS Safety Report 13278797 (Version 20)
Quarter: 2019Q3

REPORT INFORMATION
  Report Type: Spontaneous
  Country: US (occurrence: US)
  Receive Date: 20170228
  Receipt Date: 20190712
  Transmission Date: 20191004
  Serious: Yes (Hospitalization, Other)
  Sender: FDA-Public Use
  Company Number: US-ACTELION-A-US2017-150373

PATIENT
  Age: 59 Year
  Sex: Female
  Weight: 98.41 kg

DRUGS (6)
  1. VELETRI [Suspect]
     Active Substance: EPOPROSTENOL
     Indication: PULMONARY ARTERIAL HYPERTENSION
     Dosage: 54 NG/KG, PER MIN
     Route: 042
  2. VELETRI [Suspect]
     Active Substance: EPOPROSTENOL
     Dosage: 50 NG/KG, PER MIN
     Route: 042
  3. REVATIO [Concomitant]
     Active Substance: SILDENAFIL CITRATE
  4. TRACLEER [Concomitant]
     Active Substance: BOSENTAN
     Indication: PULMONARY ARTERIAL HYPERTENSION
     Dosage: UNK
     Route: 048
  5. VELETRI [Suspect]
     Active Substance: EPOPROSTENOL
     Dosage: 54 NG/KG, UNK
     Route: 042
  6. VELETRI [Suspect]
     Active Substance: EPOPROSTENOL
     Dosage: 57 NG/KG, PER MIN
     Route: 042

REACTIONS (30)
  - Pyrexia [Unknown]
  - Fall [Unknown]
  - Diarrhoea [Unknown]
  - Palpitations [Recovering/Resolving]
  - Constipation [Unknown]
  - Pneumonia [Unknown]
  - Pulmonary oedema [Unknown]
  - Ankle fracture [Unknown]
  - Loss of consciousness [Unknown]
  - Blood glucose increased [Unknown]
  - Vision blurred [Unknown]
  - Loss of personal independence in daily activities [Unknown]
  - Nasopharyngitis [Recovered/Resolved]
  - Feeling abnormal [Unknown]
  - Nausea [Unknown]
  - Tremor [Unknown]
  - Oxygen saturation decreased [Recovering/Resolving]
  - Pulmonary arterial hypertension [Unknown]
  - Cardiac failure congestive [Unknown]
  - Device dislocation [Unknown]
  - Catheter management [Unknown]
  - Lethargy [Unknown]
  - Fatigue [Unknown]
  - Lower limb fracture [Unknown]
  - Headache [Unknown]
  - Condition aggravated [Unknown]
  - Dyspnoea [Unknown]
  - Device leakage [Unknown]
  - Dyspnoea exertional [Recovering/Resolving]
  - Dizziness [Unknown]

NARRATIVE: CASE EVENT DATE: 20170218
